FAERS Safety Report 6274390-1 (Version None)
Quarter: 2009Q3

REPORT INFORMATION
  Report Type: 
  Country: None (occurrence: None)
  Receive Date: 20090716
  Receipt Date: 20090707
  Transmission Date: 20100115
  Serious: Yes (Hospitalization, Other)
  Sender: FDA-Public Use
  Company Number: CHPA2009US14728

PATIENT
  Sex: Male

DRUGS (4)
  1. ACETYLSALICYLIC ACID SRT [Suspect]
     Dosage: 325 MG,
  2. ACETYLSALICYLIC ACID SRT [Suspect]
     Dosage: 325 MG,
  3. CLOPIDOGREL [Suspect]
     Dosage: 300 MG,
  4. CLOPIDOGREL [Suspect]
     Dosage: 300 MG,

REACTIONS (9)
  - BRONCHIAL HAEMORRHAGE [None]
  - CHEST PAIN [None]
  - CORONARY ARTERY OCCLUSION [None]
  - CORONARY ARTERY STENOSIS [None]
  - ELECTROCARDIOGRAM Q WAVES [None]
  - ELECTROCARDIOGRAM ST SEGMENT ELEVATION [None]
  - HAEMOPTYSIS [None]
  - THROMBOSIS IN DEVICE [None]
  - VENTRICULAR HYPOKINESIA [None]
